FAERS Safety Report 17762293 (Version 2)
Quarter: 2021Q1

REPORT INFORMATION
  Report Type: Spontaneous
  Country: FR (occurrence: FR)
  Receive Date: 20200508
  Receipt Date: 20210329
  Transmission Date: 20210419
  Serious: Yes (Hospitalization)
  Sender: FDA-Public Use
  Company Number: FR-009507513-2005FRA001181

PATIENT
  Age: 64 Year
  Sex: Female
  Weight: 71 kg

DRUGS (5)
  1. PEMETREXED DISODIUM [Suspect]
     Active Substance: PEMETREXED DISODIUM
     Indication: LUNG ADENOCARCINOMA
     Dosage: 500 MILLIGRAM/SQ. METER; C1 13?DEC?2019; C2 06?JAN?2019; C3 27?JAN?2020; C4 17?FEB?2020
     Route: 041
     Dates: start: 20191213, end: 20200217
  2. COVERAM [Concomitant]
     Active Substance: AMLODIPINE\PERINDOPRIL
     Dosage: UNK
     Route: 048
     Dates: start: 20100101, end: 20191210
  3. PEMBROLIZUMAB. [Suspect]
     Active Substance: PEMBROLIZUMAB
     Indication: LUNG ADENOCARCINOMA
     Dosage: 200 MG; C1 13?DEC?2019; C2 06?JAN?2019; C3 27?JAN?2020; C4 17?FEB?2020
     Route: 041
  4. TAHOR [Concomitant]
     Active Substance: ATORVASTATIN CALCIUM
     Dosage: UNK
     Route: 048
     Dates: start: 20100101, end: 20191210
  5. CISPLATIN. [Suspect]
     Active Substance: CISPLATIN
     Indication: LUNG ADENOCARCINOMA
     Dosage: 75 MILLIGRAM/SQ. METER; C1 13?DEC?2019; C2 06?JAN?2019; C3 27?JAN?2020; (REDUCTION OF 10%); C4 17?FE
     Route: 041
     Dates: start: 20191213, end: 20200217

REACTIONS (3)
  - Pancytopenia [Unknown]
  - Renal tubular necrosis [Not Recovered/Not Resolved]
  - Henoch-Schonlein purpura [Unknown]

NARRATIVE: CASE EVENT DATE: 20200309
